FAERS Safety Report 10702598 (Version 1)
Quarter: 2015Q1

REPORT INFORMATION
  Report Type: Report from Study
  Country: US (occurrence: US)
  Receive Date: 20150109
  Receipt Date: 20150109
  Transmission Date: 20150721
  Serious: Yes (Hospitalization, Other)
  Sender: FDA-Public Use
  Company Number: US-EXELIXIS-XL18415005093

PATIENT
  Age: 71 Year
  Sex: Female

DRUGS (1)
  1. XL184 [Suspect]
     Active Substance: CABOZANTINIB
     Indication: OVARIAN EPITHELIAL CANCER
     Dosage: 60 MG, QD
     Route: 048
     Dates: start: 20131118, end: 20141017

REACTIONS (8)
  - Blood creatinine increased [Unknown]
  - Anaemia [Unknown]
  - Muscular weakness [Unknown]
  - Hypermagnesaemia [Unknown]
  - Hyperkalaemia [Unknown]
  - Acute kidney injury [None]
  - Fatigue [Unknown]
  - Hyponatraemia [Unknown]

NARRATIVE: CASE EVENT DATE: 20141104
